FAERS Safety Report 14925287 (Version 1)
Quarter: 2018Q2

REPORT INFORMATION
  Report Type: Spontaneous
  Country: US (occurrence: US)
  Receive Date: 20180522
  Receipt Date: 20180522
  Transmission Date: 20180711
  Serious: No
  Sender: FDA-Public Use
  Company Number: US-SHIRE-US201819441

PATIENT
  Sex: Female
  Weight: 77.98 kg

DRUGS (2)
  1. XIIDRA [Suspect]
     Active Substance: LIFITEGRAST
     Indication: PRODUCT USED FOR UNKNOWN INDICATION
     Route: 047
  2. XIIDRA [Suspect]
     Active Substance: LIFITEGRAST
     Indication: OFF LABEL USE

REACTIONS (5)
  - Vision blurred [Unknown]
  - Off label use [Unknown]
  - Instillation site pain [Unknown]
  - Foreign body sensation in eyes [Unknown]
  - Instillation site irritation [Unknown]
